FAERS Safety Report 25587230 (Version 1)
Quarter: 2025Q3

REPORT INFORMATION
  Report Type: Spontaneous
  Country: US (occurrence: None)
  Receive Date: 20250721
  Receipt Date: 20250721
  Transmission Date: 20251020
  Serious: No
  Sender: FDA-CTU
  Company Number: None

PATIENT

DRUGS (1)
  1. ENTACAPONE [Suspect]
     Active Substance: ENTACAPONE

REACTIONS (4)
  - Dizziness [None]
  - Loss of consciousness [None]
  - Fall [None]
  - Therapy cessation [None]
